FAERS Safety Report 9229644 (Version 1)
Quarter: 2013Q2

REPORT INFORMATION
  Report Type: Spontaneous
  Country: GB (occurrence: GB)
  Receive Date: 20130415
  Receipt Date: 20130415
  Transmission Date: 20140414
  Serious: Yes (Hospitalization)
  Sender: FDA-Public Use
  Company Number: GB-AMGEN-GBRSP2013016012

PATIENT
  Age: 84 Year
  Sex: Male

DRUGS (3)
  1. ARANESP [Suspect]
     Indication: NEPHROGENIC ANAEMIA
     Dosage: 30 MUG, 0.3 ML
     Dates: start: 20120816
  2. RANITIDINE [Concomitant]
     Dosage: 75 MG, UNK
     Route: 048
  3. ATENOLOL [Concomitant]
     Dosage: 25 MG, UNK
     Route: 048

REACTIONS (6)
  - Rash pruritic [Not Recovered/Not Resolved]
  - Irritability [Recovered/Resolved]
  - Diarrhoea [Unknown]
  - Faeces discoloured [Unknown]
  - Malaise [Unknown]
  - Coeliac disease [Not Recovered/Not Resolved]
